FAERS Safety Report 17604001 (Version 1)
Quarter: 2020Q1

REPORT INFORMATION
  Report Type: Spontaneous
  Country: OM (occurrence: OM)
  Receive Date: 20200331
  Receipt Date: 20200331
  Transmission Date: 20200409
  Serious: Yes (Other)
  Sender: FDA-Public Use
  Company Number: OM-ROCHE-2574532

PATIENT
  Age: 34 Year
  Sex: Female

DRUGS (1)
  1. OMALIZUMAB. [Suspect]
     Active Substance: OMALIZUMAB
     Indication: PRODUCT USED FOR UNKNOWN INDICATION
     Dosage: UNK
     Route: 065

REACTIONS (6)
  - Dizziness [Unknown]
  - Dyspnoea [Unknown]
  - Cough [Unknown]
  - Nausea [Unknown]
  - Circulatory collapse [Unknown]
  - Palpitations [Unknown]
